FAERS Safety Report 6901065-5 (Version None)
Quarter: 2010Q3

REPORT INFORMATION
  Report Type: 
  Country: None (occurrence: None)
  Receive Date: 20100730
  Receipt Date: 20100719
  Transmission Date: 20110219
  Serious: Yes (Hospitalization, Other)
  Sender: FDA-Public Use
  Company Number: CL-170(1)-2010

PATIENT
  Age: 41 Year
  Sex: Male
  Weight: 71 kg

DRUGS (4)
  1. KETOROLAC UNK [Suspect]
     Indication: PROCEDURAL PAIN
     Dosage: 180 MG ONCE IV
     Route: 042
  2. FENTANYL [Suspect]
     Indication: PROCEDURAL PAIN
     Dosage: 1000 ?G ONCE IV
     Route: 042
  3. PYRIDOSTIGMINE BROMIDE [Concomitant]
  4. GLYCOPYRROLATE [Concomitant]

REACTIONS (5)
  - ANAPHYLACTOID REACTION [None]
  - BREATH SOUNDS ABNORMAL [None]
  - PO2 DECREASED [None]
  - RASH ERYTHEMATOUS [None]
  - URTICARIA [None]
